FAERS Safety Report 21177910 (Version 6)
Quarter: 2022Q4

REPORT INFORMATION
  Report Type: Report from Study
  Country: US (occurrence: US)
  Receive Date: 20220805
  Receipt Date: 20221223
  Transmission Date: 20230113
  Serious: Yes (Hospitalization, Other)
  Sender: FDA-Public Use
  Company Number: US-BIOVITRUM-2022US08784

PATIENT
  Sex: Female

DRUGS (1)
  1. DOPTELET [Suspect]
     Active Substance: AVATROMBOPAG MALEATE
     Indication: Immune thrombocytopenia
     Dates: start: 20220131

REACTIONS (8)
  - Spinal stenosis [Unknown]
  - Platelet count decreased [Unknown]
  - Gastrointestinal haemorrhage [Unknown]
  - Muscle strain [Unknown]
  - Migraine [Unknown]
  - Back pain [Unknown]
  - Muscle spasms [Recovering/Resolving]
  - Headache [Unknown]
